FAERS Safety Report 10737472 (Version 1)
Quarter: 2015Q1

REPORT INFORMATION
  Report Type: Spontaneous
  Country: US (occurrence: None)
  Receive Date: 20150122
  Receipt Date: 20150122
  Transmission Date: 20150721
  Serious: Yes (Other)
  Sender: FDA-Public Use
  Company Number: 2013V1000165

PATIENT
  Age: 55 Year
  Sex: Female

DRUGS (9)
  1. QSYMIA [Suspect]
     Active Substance: PHENTERMINE HYDROCHLORIDE\TOPIRAMATE
     Indication: PRODUCT USED FOR UNKNOWN INDICATION
     Dosage: ; QD ; PO
     Route: 048
     Dates: start: 2013
  2. LIVALO [Concomitant]
     Active Substance: PITAVASTATIN CALCIUM
  3. RAMIPRIL. [Concomitant]
     Active Substance: RAMIPRIL
  4. NORVASC [Concomitant]
     Active Substance: AMLODIPINE BESYLATE
  5. VITAMIN D3 [Concomitant]
     Active Substance: CHOLECALCIFEROL
  6. ZETIA [Concomitant]
     Active Substance: EZETIMIBE
  7. VITAMIN B12 /00091801/ [Concomitant]
  8. CO ENZYME Q10 /00517201 [Concomitant]
  9. GLUMETZA [Concomitant]
     Active Substance: METFORMIN HYDROCHLORIDE

REACTIONS (4)
  - Depression [None]
  - Suicidal ideation [None]
  - Insomnia [None]
  - Pain [None]

NARRATIVE: CASE EVENT DATE: 201303
